FAERS Safety Report 22529594 (Version 1)
Quarter: 2023Q2

REPORT INFORMATION
  Report Type: Spontaneous
  Country: US (occurrence: US)
  Receive Date: 20230607
  Receipt Date: 20230607
  Transmission Date: 20230721
  Serious: Yes (Hospitalization, Other)
  Sender: FDA-Public Use
  Company Number: US-AMGEN-USASP2023095639

PATIENT
  Age: 72 Year
  Sex: Female

DRUGS (2)
  1. XGEVA [Suspect]
     Active Substance: DENOSUMAB
     Indication: Osteoporosis
     Dosage: UNK
     Route: 058
     Dates: end: 202211
  2. EVENITY [Suspect]
     Active Substance: ROMOSOZUMAB-AQQG
     Indication: Osteoporosis
     Dosage: 210 MILLIGRAM, QMO
     Route: 058
     Dates: start: 20230213

REACTIONS (4)
  - Spinal fracture [Unknown]
  - Myeloid leukaemia [Recovering/Resolving]
  - Osteonecrosis of jaw [Unknown]
  - Off label use [Unknown]

NARRATIVE: CASE EVENT DATE: 20230101
